FAERS Safety Report 4599618-5 (Version None)
Quarter: 2005Q1

REPORT INFORMATION
  Report Type: 
  Country: None (occurrence: None)
  Receive Date: 20050304
  Receipt Date: 20050304
  Transmission Date: 20050727
  Serious: Yes (Hospitalization)
  Sender: FDA-Public Use
  Company Number: None

PATIENT
  Age: 9 Year
  Sex: Female
  Weight: 27.7 kg

DRUGS (2)
  1. TRILEPTAL [Suspect]
     Indication: GRAND MAL CONVULSION
     Dosage: 150 MG PO BID
     Route: 048
     Dates: start: 20050123
  2. FOLIC ACID [Concomitant]

REACTIONS (1)
  - STEVENS-JOHNSON SYNDROME [None]
